FAERS Safety Report 21775477 (Version 1)
Quarter: 2022Q4

REPORT INFORMATION
  Report Type: Spontaneous
  Country: DE (occurrence: DE)
  Receive Date: 20221226
  Receipt Date: 20221226
  Transmission Date: 20230113
  Serious: Yes (Hospitalization, Other)
  Sender: FDA-Public Use
  Company Number: DE-ABBVIE-4248832

PATIENT
  Age: 53 Year
  Sex: Female

DRUGS (1)
  1. VENETOCLAX [Suspect]
     Active Substance: VENETOCLAX
     Indication: Diffuse large B-cell lymphoma
     Route: 048

REACTIONS (7)
  - Hospitalisation [Unknown]
  - Pain [Unknown]
  - TP53 gene mutation [Unknown]
  - Richter^s syndrome [Unknown]
  - Karyotype analysis abnormal [Unknown]
  - Immunoglobulins abnormal [Unknown]
  - Chronic lymphocytic leukaemia [Unknown]
